FAERS Safety Report 21418263 (Version 2)
Quarter: 2023Q1

REPORT INFORMATION
  Report Type: Spontaneous
  Country: JP (occurrence: JP)
  Receive Date: 20221006
  Receipt Date: 20230105
  Transmission Date: 20230417
  Serious: Yes (Other)
  Sender: FDA-Public Use
  Company Number: JP-Eisai-202208616_LEN-EC_P_1

PATIENT
  Sex: Female

DRUGS (2)
  1. LENVIMA [Suspect]
     Active Substance: LENVATINIB
     Indication: Endometrial cancer
     Dosage: DOSE AND FREQUENCY UNKNOWN
     Route: 048
     Dates: end: 20220926
  2. KEYTRUDA [Suspect]
     Active Substance: PEMBROLIZUMAB
     Indication: Endometrial cancer
     Route: 041

REACTIONS (8)
  - Neutropenia [Unknown]
  - Headache [Unknown]
  - Malaise [Unknown]
  - Urinary occult blood [Unknown]
  - Proteinuria [Unknown]
  - Arthralgia [Unknown]
  - Pyrexia [Unknown]
  - Hypertension [Unknown]

NARRATIVE: CASE EVENT DATE: 20220926
